FAERS Safety Report 5886221-X (Version None)
Quarter: 2008Q3

REPORT INFORMATION
  Report Type: 
  Country: None (occurrence: None)
  Receive Date: 20080917
  Receipt Date: 20080904
  Transmission Date: 20090109
  Serious: Yes (Death, Hospitalization, Other)
  Sender: FDA-Public Use
  Company Number: FR-ELI_LILLY_AND_COMPANY-FR200809000817

PATIENT
  Sex: Female

DRUGS (3)
  1. GEMZAR [Suspect]
     Indication: NEOPLASM MALIGNANT
     Dosage: 1 D/F, UNKNOWN
     Route: 042
     Dates: start: 20080625
  2. GEMZAR [Suspect]
     Dosage: 1 D/F, UNKNOWN
     Route: 042
     Dates: start: 20080703
  3. INNOHEP [Concomitant]
     Indication: DEEP VEIN THROMBOSIS
     Dosage: UNK, UNK
     Route: 058
     Dates: start: 20080610, end: 20080629

REACTIONS (7)
  - ANAEMIA [None]
  - DEEP VEIN THROMBOSIS [None]
  - FEBRILE NEUTROPENIA [None]
  - HEPARIN-INDUCED THROMBOCYTOPENIA [None]
  - NEOPLASM MALIGNANT [None]
  - THROMBOCYTOPENIA [None]
  - WHITE BLOOD CELL COUNT DECREASED [None]
